FAERS Safety Report 5423758-1 (Version None)
Quarter: 2007Q3

REPORT INFORMATION
  Report Type: 
  Country: None (occurrence: None)
  Receive Date: 20070727
  Receipt Date: 20040901
  Transmission Date: 20080115
  Serious: Yes (Hospitalization)
  Sender: FDA-Public Use
  Company Number: THYM-10278

PATIENT
  Age: 54 Year
  Sex: Female
  Weight: 67.586 kg

DRUGS (10)
  1. THYMOGLOBULIN [Suspect]
     Indication: RENAL TRANSPLANT
     Dosage: 100 MG QD
     Dates: start: 20040224, end: 20040226
  2. THYMOGLOBULIN [Suspect]
     Indication: RENAL TRANSPLANT
     Dosage: 50 MG QD
     Dates: start: 20040227, end: 20040227
  3. ACYCLOVIR [Concomitant]
  4. MYCELEX [Concomitant]
  5. BACTRIM DS [Concomitant]
  6. FAMOTIDINE [Concomitant]
  7. CALCIUM CARBONATE [Concomitant]
  8. CALCITRIOL [Concomitant]
  9. ATENOLOL [Concomitant]
  10. HUMULIN R [Concomitant]

REACTIONS (1)
  - BLOOD CREATININE INCREASED [None]
